FAERS Safety Report 6213193-0 (Version None)
Quarter: 2009Q2

REPORT INFORMATION
  Report Type: 
  Country: None (occurrence: None)
  Receive Date: 20090602
  Receipt Date: 20090602
  Transmission Date: 20091009
  Serious: Yes (Death)
  Sender: FDA-Public Use
  Company Number: None

PATIENT
  Age: 82 Year
  Sex: Male
  Weight: 81.6475 kg

DRUGS (1)
  1. RITUXAN [Suspect]
     Indication: NON-HODGKIN'S LYMPHOMA
     Dates: start: 20051201, end: 20071031

REACTIONS (4)
  - AMNESIA [None]
  - CENTRAL NERVOUS SYSTEM LYMPHOMA [None]
  - CONFUSIONAL STATE [None]
  - MENTAL DISORDER [None]
